FAERS Safety Report 22888380 (Version 6)
Quarter: 2023Q4

REPORT INFORMATION
  Report Type: Report from Study
  Country: TR (occurrence: TR)
  Receive Date: 20230831
  Receipt Date: 20231204
  Transmission Date: 20240109
  Serious: Yes (Other)
  Sender: FDA-Public Use
  Company Number: TR-PFIZER INC-PV202300147275

PATIENT
  Age: 70 Year
  Sex: Male

DRUGS (4)
  1. ELRANATAMAB [Suspect]
     Active Substance: ELRANATAMAB
     Indication: Plasma cell myeloma refractory
     Dosage: 76 MG, WEEKLY
     Route: 042
     Dates: start: 20230321
  2. ELRANATAMAB [Suspect]
     Active Substance: ELRANATAMAB
     Dosage: 44 MG, 5 AND 6
     Route: 042
     Dates: start: 20230822
  3. RIVAROXABAN [Concomitant]
     Active Substance: RIVAROXABAN
     Indication: Atrial fibrillation
     Dosage: 20 MG, 1X/DAY
     Route: 048
     Dates: start: 20220804
  4. IVIGLOB EX [Concomitant]
     Active Substance: HUMAN IMMUNOGLOBULIN G
     Indication: Blood immunoglobulin G decreased
     Dosage: 400 MG/KG, MONTHLY
     Route: 042
     Dates: start: 20230802

REACTIONS (2)
  - Peripheral sensorimotor neuropathy [Recovered/Resolved]
  - Pneumonia [Recovered/Resolved]

NARRATIVE: CASE EVENT DATE: 20230801
